FAERS Safety Report 13618294 (Version 1)
Quarter: 2017Q2

REPORT INFORMATION
  Report Type: Spontaneous
  Country: US (occurrence: US)
  Receive Date: 20170606
  Receipt Date: 20170606
  Transmission Date: 20170830
  Serious: No
  Sender: FDA-Public Use
  Company Number: US-JNJFOC-20170312615

PATIENT
  Sex: Male

DRUGS (3)
  1. SUTENT [Concomitant]
     Active Substance: SUNITINIB MALATE
     Indication: DISEASE RECURRENCE
     Route: 065
     Dates: start: 201609
  2. IMODIUM [Suspect]
     Active Substance: LOPERAMIDE HYDROCHLORIDE
     Indication: DIARRHOEA
     Route: 048
  3. IMODIUM [Suspect]
     Active Substance: LOPERAMIDE HYDROCHLORIDE
     Route: 048

REACTIONS (3)
  - Drug ineffective [Unknown]
  - Decreased appetite [Unknown]
  - Dysgeusia [Unknown]
